FAERS Safety Report 20620677 (Version 1)
Quarter: 2022Q1

REPORT INFORMATION
  Report Type: Spontaneous
  Country: US (occurrence: US)
  Receive Date: 20220322
  Receipt Date: 20220322
  Transmission Date: 20220423
  Serious: No
  Sender: FDA-Public Use
  Company Number: US-BAYER-2022A041057

PATIENT
  Age: 54 Year
  Sex: Male

DRUGS (1)
  1. GADAVIST [Suspect]
     Active Substance: GADOBUTROL
     Indication: Magnetic resonance imaging
     Dosage: 10 ML, ONCE
     Route: 042
     Dates: start: 20220318, end: 20220318

REACTIONS (1)
  - Urticaria [None]

NARRATIVE: CASE EVENT DATE: 20220318
